FAERS Safety Report 4312849-4 (Version None)
Quarter: 2004Q1

REPORT INFORMATION
  Report Type: 
  Country: None (occurrence: None)
  Receive Date: 20040304
  Receipt Date: 20040220
  Transmission Date: 20041129
  Serious: Yes (Other)
  Sender: FDA-Public Use
  Company Number: 204920

PATIENT
  Sex: Male

DRUGS (4)
  1. MABTHERA            (RITUXIMAB) [Suspect]
     Indication: LYMPHOMA
     Dosage: 500 MG, 1/WEEK, INTRAVENOUS
     Route: 042
     Dates: start: 20040201
  2. FLUDARABINE PHOSPHATE [Concomitant]
  3. VERAPAMIL [Concomitant]
  4. CYCLOPHOSPHAMIDE [Concomitant]

REACTIONS (2)
  - BLOOD BILIRUBIN INCREASED [None]
  - JAUNDICE [None]
